FAERS Safety Report 6251203-5 (Version None)
Quarter: 2009Q2

REPORT INFORMATION
  Report Type: 
  Country: None (occurrence: None)
  Receive Date: 20090630
  Receipt Date: 20090615
  Transmission Date: 20091009
  Serious: Yes (Hospitalization)
  Sender: FDA-Public Use
  Company Number: US-ALEXION-A200900401

PATIENT
  Sex: Female

DRUGS (19)
  1. SOLIRIS [Suspect]
     Indication: PAROXYSMAL NOCTURNAL HAEMOGLOBINURIA
     Dosage: 600 MG, QW
     Route: 042
     Dates: start: 20090325, end: 20090415
  2. SOLIRIS [Suspect]
     Dosage: 900 MG, Q2W
     Route: 042
     Dates: start: 20090422, end: 20090506
  3. FEMARA [Concomitant]
     Dosage: UNK
     Route: 048
  4. ACYCLOVIR [Concomitant]
     Dosage: 400 MG, BID
     Route: 048
  5. ZYRTEC [Concomitant]
     Dosage: 10 MG, QD
     Route: 048
  6. ASPIRIN [Concomitant]
     Dosage: 81 MG, QD
     Route: 048
  7. DAPSONE [Concomitant]
     Dosage: 100 MG, QD
     Route: 048
  8. AXID [Concomitant]
     Dosage: 1000 MG, QD
     Route: 048
  9. FLUCONAZOLE [Concomitant]
     Dosage: 200 MG, QD
     Route: 048
  10. FOLIC ACID [Concomitant]
     Dosage: 4 MG, QD
  11. DILAUDID [Concomitant]
     Dosage: 2 MG, QD
     Route: 048
  12. POTASSIUM CHLORIDE [Concomitant]
     Dosage: 10 MEQ, QD
     Route: 048
  13. COMPAZINE                          /00013302/ [Concomitant]
     Dosage: 10 MG, PRN
     Route: 048
  14. LORAZEPAM [Concomitant]
     Dosage: 1 MG, QD
     Route: 048
  15. ZOFRAN [Concomitant]
     Dosage: 8 MG, PRN Q6H
     Route: 048
  16. PREVACID [Concomitant]
     Dosage: 30 MG, QD
  17. LETROZOLE [Concomitant]
     Dosage: 25 MG, QD
  18. FILGRASTIM [Concomitant]
     Dosage: 1600 MG, 3X/W
  19. TYLENOL (CAPLET) [Concomitant]
     Dosage: UNK
     Route: 048

REACTIONS (6)
  - BLOOD LACTATE DEHYDROGENASE INCREASED [None]
  - HAEMOGLOBIN DECREASED [None]
  - MUSCULOSKELETAL STIFFNESS [None]
  - PLATELET COUNT DECREASED [None]
  - VIRAL INFECTION [None]
  - WHITE BLOOD CELL COUNT DECREASED [None]
